FAERS Safety Report 8092563-2 (Version None)
Quarter: 2012Q1

REPORT INFORMATION
  Report Type: 
  Country: None (occurrence: None)
  Receive Date: 20120128
  Receipt Date: 20110829
  Transmission Date: 20120608
  Serious: No
  Sender: FDA-Public Use
  Company Number: US-ABBOTT-11P-163-0850056-00

PATIENT
  Sex: Female

DRUGS (4)
  1. UNKNOWN MEDICATION [Concomitant]
     Indication: HYPERSENSITIVITY
  2. UNKNOWN MEDICATION [Concomitant]
     Indication: ULCER
  3. HUMIRA [Suspect]
     Indication: CROHN'S DISEASE
     Route: 058
     Dates: start: 20110801, end: 20110801
  4. HUMIRA [Suspect]
     Route: 058
     Dates: start: 20110801, end: 20110801

REACTIONS (2)
  - FATIGUE [None]
  - CROHN'S DISEASE [None]
